FAERS Safety Report 22541629 (Version 1)
Quarter: 2023Q2

REPORT INFORMATION
  Report Type: Spontaneous
  Country: US (occurrence: None)
  Receive Date: 20230608
  Receipt Date: 20230608
  Transmission Date: 20230722
  Serious: No
  Sender: FDA-Public Use
  Company Number: None

PATIENT
  Sex: Female

DRUGS (15)
  1. LENALIDOMIDE [Suspect]
     Active Substance: LENALIDOMIDE
     Indication: Plasma cell myeloma
     Dosage: FREQUENCY : DAILY;?OTHER ROUTE : PO D1-14 7D OFF;?
     Route: 050
  2. DARZALEX IV SOLUTION [Concomitant]
  3. LORATADINE [Concomitant]
  4. DORZOLAMIDE [Concomitant]
     Active Substance: DORZOLAMIDE
  5. ERGOCALCIFEROL [Concomitant]
     Active Substance: ERGOCALCIFEROL
  6. NADOLOL [Concomitant]
  7. DEXAMETASONE [Concomitant]
  8. ONDANSETRON [Concomitant]
  9. PROCHLORPERZAINE [Concomitant]
  10. ZOLEDRONIC ACID [Concomitant]
     Active Substance: ZOLEDRONIC ACID
  11. ACETAMINOPHEN [Concomitant]
     Active Substance: ACETAMINOPHEN
  12. PEPCID [Concomitant]
     Active Substance: FAMOTIDINE
  13. VELCADE [Concomitant]
     Active Substance: BORTEZOMIB
  14. CALCIUM [Concomitant]
  15. PYRIDOXINE HYDROCHLORIDE [Concomitant]
     Active Substance: PYRIDOXINE HYDROCHLORIDE

REACTIONS (1)
  - Vision blurred [None]
